FAERS Safety Report 9290258 (Version 1)
Quarter: 2013Q2

REPORT INFORMATION
  Report Type: Spontaneous
  Country: US (occurrence: US)
  Receive Date: 20130515
  Receipt Date: 20130515
  Transmission Date: 20140414
  Serious: No
  Sender: FDA-Public Use
  Company Number: US-PFIZER INC-2013146396

PATIENT
  Age: 63 Year
  Sex: Female

DRUGS (15)
  1. XALKORI [Suspect]
     Dosage: 250 MG, 2X/DAY
     Route: 048
  2. FUROSEMIDE [Concomitant]
     Dosage: 20 MG, UNK
  3. KLOR-CON [Concomitant]
     Dosage: 10 MEQ, UNK
  4. WARFARIN [Concomitant]
     Dosage: 2 MG, UNK
  5. METOPROLOL [Concomitant]
     Dosage: 25 MG, UNK
  6. PRAVASTATIN [Concomitant]
     Dosage: 20 MG, UNK
  7. ALBUTEROL [Concomitant]
     Dosage: 2 MG, UNK
  8. IPRATROPIUM [Concomitant]
     Dosage: 0.03 %, UNK
  9. PRO-AIR [Concomitant]
     Dosage: UNK
  10. SYMBICORT [Concomitant]
     Dosage: UNK
  11. TARCEVA [Concomitant]
     Dosage: 25 MG, UNK
  12. CLINDAMYCIN [Concomitant]
     Dosage: UNK
  13. EUCERIN CREME [Concomitant]
     Dosage: UNK
  14. VITAMIN D [Concomitant]
     Dosage: 50000 IU, UNK
  15. ALEVE [Concomitant]
     Indication: MUSCULOSKELETAL PAIN
     Dosage: 220 MG, UNK

REACTIONS (2)
  - Musculoskeletal pain [Unknown]
  - Arthritis [Unknown]
